FAERS Safety Report 10625177 (Version 1)
Quarter: 2014Q4

REPORT INFORMATION
  Report Type: Spontaneous
  Country: US (occurrence: None)
  Receive Date: 20141202
  Receipt Date: 20141202
  Transmission Date: 20150529
  Serious: Yes (Other)
  Sender: FDA-Public Use
  Company Number: US2014GSK027863

PATIENT
  Age: 51 Year
  Sex: Male

DRUGS (3)
  1. ABACAVIR (ABACAVIR SULPHATE) UNKNOWN [Suspect]
     Active Substance: ABACAVIR
     Indication: HIV INFECTION
  2. DIDANOSINE (DIDANOSINE) [Suspect]
     Active Substance: DIDANOSINE
     Indication: HIV INFECTION
  3. EFAVIRENZ (EFAVIRENZ) [Suspect]
     Active Substance: EFAVIRENZ
     Indication: HIV INFECTION

REACTIONS (2)
  - Eyelid ptosis [None]
  - Mitochondrial myopathy [None]
